FAERS Safety Report 5343715-3 (Version None)
Quarter: 2007Q2

REPORT INFORMATION
  Report Type: 
  Country: None (occurrence: None)
  Receive Date: 20070604
  Receipt Date: 20070525
  Transmission Date: 20071010
  Serious: Yes (Other)
  Sender: FDA-Public Use
  Company Number: CN-BAYER-200712247GDS

PATIENT
  Age: 66 Year
  Sex: Male

DRUGS (3)
  1. NEXAVAR [Suspect]
     Indication: HEPATIC NEOPLASM MALIGNANT
     Dosage: UNIT DOSE: 400 MG
     Route: 048
     Dates: start: 20070310
  2. HEXADECADROL [Concomitant]
     Indication: HEPATIC NEOPLASM MALIGNANT
     Route: 030
  3. ALBUMIN (HUMAN) [Concomitant]
     Indication: HEPATIC NEOPLASM MALIGNANT
     Route: 042

REACTIONS (6)
  - COUGH [None]
  - HEPATIC NEOPLASM MALIGNANT [None]
  - MOUTH ULCERATION [None]
  - PALMAR-PLANTAR ERYTHRODYSAESTHESIA SYNDROME [None]
  - PYREXIA [None]
  - RASH [None]
